FAERS Safety Report 24167528 (Version 5)
Quarter: 2025Q2

REPORT INFORMATION
  Report Type: Spontaneous
  Country: JP (occurrence: JP)
  Receive Date: 20240802
  Receipt Date: 20250401
  Transmission Date: 20250716
  Serious: Yes (Death, Hospitalization)
  Sender: EISAI
  Company Number: JP-Eisai-EC-2024-171086

PATIENT
  Age: 65 Year
  Sex: Female

DRUGS (5)
  1. LENVIMA [Suspect]
     Active Substance: LENVATINIB
     Indication: Endometrial cancer
     Dates: start: 20240220, end: 20240514
  2. LENVIMA [Suspect]
     Active Substance: LENVATINIB
     Dates: start: 202405, end: 20240723
  3. LENVIMA [Suspect]
     Active Substance: LENVATINIB
     Dates: start: 2024, end: 20240910
  4. KEYTRUDA [Suspect]
     Active Substance: PEMBROLIZUMAB
     Indication: Endometrial cancer
     Route: 041
     Dates: start: 20240220, end: 20240723
  5. KEYTRUDA [Suspect]
     Active Substance: PEMBROLIZUMAB
     Dates: start: 2024, end: 20240902

REACTIONS (2)
  - Malignant neoplasm progression [Fatal]
  - Cholangitis [Not Recovered/Not Resolved]

NARRATIVE: CASE EVENT DATE: 20240723
